FAERS Safety Report 5354112-9 (Version None)
Quarter: 2007Q2

REPORT INFORMATION
  Report Type: 
  Country: None (occurrence: None)
  Receive Date: 20070521
  Receipt Date: 20070126
  Transmission Date: 20071010
  Serious: No
  Sender: FDA-Public Use
  Company Number: WAES 0701USA04499

PATIENT
  Age: 49 Year
  Sex: Male
  Weight: 139.7079 kg

DRUGS (2)
  1. JANUVIA [Suspect]
     Dosage: 100 MG/DAILY/PO
     Route: 048
     Dates: start: 20061214, end: 20061214
  2. JANUVIA [Suspect]
     Dosage: 100 MG/DAILY/PO
     Route: 048
     Dates: start: 20061216, end: 20061216

REACTIONS (1)
  - MUSCULOSKELETAL DISCOMFORT [None]
